FAERS Safety Report 10406821 (Version 1)
Quarter: 2014Q3

REPORT INFORMATION
  Report Type: Report from Study
  Country: US (occurrence: US)
  Receive Date: 20140825
  Receipt Date: 20140825
  Transmission Date: 20150326
  Serious: Yes (Disabling)
  Sender: FDA-Public Use
  Company Number: US-GILEAD-2014-0112821

PATIENT
  Age: 55 Year
  Sex: Female
  Weight: 68.27 kg

DRUGS (2)
  1. OLYSIO [Suspect]
     Active Substance: SIMEPREVIR
     Indication: HEPATITIS C
     Dosage: 150 MG, QD
     Route: 048
     Dates: start: 20140707
  2. SOFOSBUVIR [Suspect]
     Active Substance: SOFOSBUVIR
     Indication: HEPATITIS C
     Dosage: UNK
     Route: 065
     Dates: start: 20140707

REACTIONS (5)
  - Muscle spasms [Recovered/Resolved]
  - Grip strength decreased [Unknown]
  - Pain in extremity [Recovered/Resolved]
  - Off label use [Not Recovered/Not Resolved]
  - Gait disturbance [Recovered/Resolved]

NARRATIVE: CASE EVENT DATE: 20140707
